FAERS Safety Report 20866458 (Version 2)
Quarter: 2022Q3

REPORT INFORMATION
  Report Type: Report from Study
  Country: GB (occurrence: GB)
  Receive Date: 20220524
  Receipt Date: 20220906
  Transmission Date: 20221027
  Serious: Yes (Death, Hospitalization, Other)
  Sender: FDA-Public Use
  Company Number: GB-GLAXOSMITHKLINE-GB2022EME080271

PATIENT

DRUGS (1)
  1. MEPOLIZUMAB [Suspect]
     Active Substance: MEPOLIZUMAB
     Indication: Asthma
     Dosage: 100 MG
     Dates: start: 202110

REACTIONS (5)
  - Myocardial infarction [Fatal]
  - Pulmonary oedema [Unknown]
  - Asthma [Unknown]
  - Hydronephrosis [Unknown]
  - Product dose omission issue [Unknown]
